FAERS Safety Report 6824216-X (Version None)
Quarter: 2010Q3

REPORT INFORMATION
  Report Type: 
  Country: None (occurrence: None)
  Receive Date: 20100708
  Receipt Date: 20061012
  Transmission Date: 20110219
  Serious: No
  Sender: FDA-Public Use
  Company Number: US-PFIZER INC-2006127028

PATIENT
  Age: 67 Year
  Sex: Male

DRUGS (2)
  1. CHANTIX [Suspect]
     Indication: EX-TOBACCO USER
     Dates: start: 20060101
  2. SPIRIVA [Concomitant]

REACTIONS (1)
  - INCREASED UPPER AIRWAY SECRETION [None]
